FAERS Safety Report 20730354 (Version 2)
Quarter: 2022Q2

REPORT INFORMATION
  Report Type: Report from Study
  Country: US (occurrence: US)
  Receive Date: 20220420
  Receipt Date: 20220526
  Transmission Date: 20220721
  Serious: Yes (Other)
  Sender: FDA-Public Use
  Company Number: US-NOVARTISPH-NVSC2022US091112

PATIENT
  Age: 54 Year
  Sex: Male

DRUGS (2)
  1. ENTRESTO [Suspect]
     Active Substance: SACUBITRIL\VALSARTAN
     Indication: Product used for unknown indication
     Dosage: 50 MG (49/51 MG), BID
     Route: 048
     Dates: start: 202111
  2. UNSPECIFIED INGREDIENT [Concomitant]
     Active Substance: UNSPECIFIED INGREDIENT
     Indication: Product used for unknown indication
     Dosage: UNK (6 OR 7 PILLS PER DAY)
     Route: 065

REACTIONS (3)
  - Cardiac failure acute [Unknown]
  - Arthralgia [Unknown]
  - Troponin increased [Unknown]

NARRATIVE: CASE EVENT DATE: 20211101
